FAERS Safety Report 10513451 (Version 2)
Quarter: 2014Q4

REPORT INFORMATION
  Report Type: Report from Study
  Country: TR (occurrence: TR)
  Receive Date: 20141013
  Receipt Date: 20141021
  Transmission Date: 20150528
  Serious: Yes (Hospitalization)
  Sender: FDA-Public Use
  Company Number: TR-ROCHE-1471777

PATIENT
  Age: 71 Year
  Sex: Female
  Weight: 65.3 kg

DRUGS (66)
  1. OBINUTUZUMAB [Suspect]
     Active Substance: OBINUTUZUMAB
     Dosage: C2D1
     Route: 042
     Dates: start: 20140807, end: 20140807
  2. BENDAMUSTINE [Suspect]
     Active Substance: BENDAMUSTINE
     Dosage: C3D1
     Route: 042
     Dates: start: 20140908, end: 20140908
  3. AVIL [Concomitant]
     Active Substance: PHENIRAMINE
     Route: 042
     Dates: start: 20140909, end: 20140909
  4. GRANISETRON [Concomitant]
     Active Substance: GRANISETRON
     Route: 042
     Dates: start: 20140716, end: 20140716
  5. RANITIDINE [Concomitant]
     Active Substance: RANITIDINE\RANITIDINE HYDROCHLORIDE
     Route: 042
     Dates: start: 20140704, end: 20140704
  6. RANITIDINE [Concomitant]
     Active Substance: RANITIDINE\RANITIDINE HYDROCHLORIDE
     Route: 042
     Dates: start: 20140723, end: 20140723
  7. RANITIDINE [Concomitant]
     Active Substance: RANITIDINE\RANITIDINE HYDROCHLORIDE
     Route: 042
     Dates: start: 20141014, end: 20141014
  8. DEKORT [Concomitant]
     Active Substance: DEXAMETHASONE
     Indication: PROPHYLAXIS
     Route: 042
     Dates: start: 20140704, end: 20140704
  9. KARVEZIDE [Concomitant]
     Active Substance: HYDROCHLOROTHIAZIDE\IRBESARTAN
     Route: 048
     Dates: start: 2000
  10. OBINUTUZUMAB [Suspect]
     Active Substance: OBINUTUZUMAB
     Dosage: C1D8
     Route: 042
     Dates: start: 20140716, end: 20140716
  11. BENDAMUSTINE [Suspect]
     Active Substance: BENDAMUSTINE
     Dosage: C3D2
     Route: 042
     Dates: start: 20140909, end: 20140909
  12. GRANISETRON [Concomitant]
     Active Substance: GRANISETRON
     Route: 042
     Dates: start: 20140704, end: 20140704
  13. GRANISETRON [Concomitant]
     Active Substance: GRANISETRON
     Route: 042
     Dates: start: 20140808, end: 20140808
  14. GRANISETRON [Concomitant]
     Active Substance: GRANISETRON
     Route: 042
     Dates: start: 20140909, end: 20140909
  15. GRANISETRON [Concomitant]
     Active Substance: GRANISETRON
     Route: 042
     Dates: start: 20141013, end: 20141013
  16. RANITIDINE [Concomitant]
     Active Substance: RANITIDINE\RANITIDINE HYDROCHLORIDE
     Indication: PROPHYLAXIS
     Route: 042
     Dates: start: 20140703, end: 20140703
  17. RANITIDINE [Concomitant]
     Active Substance: RANITIDINE\RANITIDINE HYDROCHLORIDE
     Route: 042
     Dates: start: 20140807, end: 20140807
  18. PARACETAMOL [Concomitant]
     Active Substance: ACETAMINOPHEN
     Route: 048
     Dates: start: 2013
  19. DEXAMETHASONE. [Concomitant]
     Active Substance: DEXAMETHASONE
     Indication: PROPHYLAXIS
     Route: 048
     Dates: start: 20140703, end: 20140703
  20. AVIL [Concomitant]
     Active Substance: PHENIRAMINE
     Indication: PROPHYLAXIS
     Route: 042
     Dates: start: 20140703, end: 20140703
  21. AVIL [Concomitant]
     Active Substance: PHENIRAMINE
     Route: 042
     Dates: start: 20141013, end: 20141013
  22. GRANISETRON [Concomitant]
     Active Substance: GRANISETRON
     Route: 042
     Dates: start: 20141014, end: 20141014
  23. RANITIDINE [Concomitant]
     Active Substance: RANITIDINE\RANITIDINE HYDROCHLORIDE
     Route: 042
     Dates: start: 20140909, end: 20140909
  24. DEKORT [Concomitant]
     Active Substance: DEXAMETHASONE
     Route: 042
     Dates: start: 20140723, end: 20140723
  25. DEKORT [Concomitant]
     Active Substance: DEXAMETHASONE
     Route: 042
     Dates: start: 20141014, end: 20141014
  26. FILGRASTIM [Concomitant]
     Active Substance: FILGRASTIM
     Dosage: 48 MU
     Route: 058
     Dates: start: 20140909, end: 20140913
  27. FILGRASTIM [Concomitant]
     Active Substance: FILGRASTIM
     Dosage: DOSE: 48 MU
     Route: 065
     Dates: start: 20141005, end: 20141014
  28. BENDAMUSTINE [Suspect]
     Active Substance: BENDAMUSTINE
     Dosage: C4D1
     Route: 042
     Dates: start: 20141013, end: 20141013
  29. AVIL [Concomitant]
     Active Substance: PHENIRAMINE
     Route: 042
     Dates: start: 20140704, end: 20140704
  30. GRANISETRON [Concomitant]
     Active Substance: GRANISETRON
     Route: 048
     Dates: start: 20140705, end: 20140709
  31. DEKORT [Concomitant]
     Active Substance: DEXAMETHASONE
     Route: 042
     Dates: start: 20140909, end: 20140909
  32. OBINUTUZUMAB [Suspect]
     Active Substance: OBINUTUZUMAB
     Indication: CHRONIC LYMPHOCYTIC LEUKAEMIA
     Dosage: C1D1
     Route: 042
     Dates: start: 20140703, end: 20140704
  33. OBINUTUZUMAB [Suspect]
     Active Substance: OBINUTUZUMAB
     Dosage: C1D15
     Route: 042
     Dates: start: 20140723, end: 20140723
  34. BENDAMUSTINE [Suspect]
     Active Substance: BENDAMUSTINE
     Dosage: C1D2
     Route: 042
     Dates: start: 20140705, end: 20140705
  35. AVIL [Concomitant]
     Active Substance: PHENIRAMINE
     Route: 042
     Dates: start: 20140908, end: 20140908
  36. AVIL [Concomitant]
     Active Substance: PHENIRAMINE
     Route: 042
     Dates: start: 20141014, end: 20141014
  37. GRANISETRON [Concomitant]
     Active Substance: GRANISETRON
     Route: 042
     Dates: start: 20140723, end: 20140723
  38. GRANISETRON [Concomitant]
     Active Substance: GRANISETRON
     Route: 042
     Dates: start: 20140908, end: 20140908
  39. RANITIDINE [Concomitant]
     Active Substance: RANITIDINE\RANITIDINE HYDROCHLORIDE
     Route: 042
     Dates: start: 20141013, end: 20141013
  40. OBINUTUZUMAB [Suspect]
     Active Substance: OBINUTUZUMAB
     Dosage: C1D2
     Route: 042
     Dates: start: 20140704, end: 20140705
  41. OBINUTUZUMAB [Suspect]
     Active Substance: OBINUTUZUMAB
     Dosage: C3D1
     Route: 042
     Dates: start: 20140908, end: 20140908
  42. OBINUTUZUMAB [Suspect]
     Active Substance: OBINUTUZUMAB
     Dosage: C4D1
     Route: 042
     Dates: start: 20141013, end: 20141013
  43. BENDAMUSTINE [Suspect]
     Active Substance: BENDAMUSTINE
     Dosage: C2D1
     Route: 042
     Dates: start: 20140807, end: 20140807
  44. BENDAMUSTINE [Suspect]
     Active Substance: BENDAMUSTINE
     Dosage: C4D2
     Route: 042
     Dates: start: 20141014, end: 20141014
  45. AVIL [Concomitant]
     Active Substance: PHENIRAMINE
     Route: 042
     Dates: start: 20140723, end: 20140723
  46. AVIL [Concomitant]
     Active Substance: PHENIRAMINE
     Route: 042
     Dates: start: 20140807, end: 20140807
  47. GRANISETRON [Concomitant]
     Active Substance: GRANISETRON
     Route: 042
     Dates: start: 20140703, end: 20140703
  48. GRANISETRON [Concomitant]
     Active Substance: GRANISETRON
     Route: 042
     Dates: start: 20140807, end: 20140807
  49. RANITIDINE [Concomitant]
     Active Substance: RANITIDINE\RANITIDINE HYDROCHLORIDE
     Route: 042
     Dates: start: 20140716, end: 20140716
  50. RANITIDINE [Concomitant]
     Active Substance: RANITIDINE\RANITIDINE HYDROCHLORIDE
     Route: 042
     Dates: start: 20140908, end: 20140908
  51. FILGRASTIM [Concomitant]
     Active Substance: FILGRASTIM
     Dosage: 48 MU
     Route: 042
     Dates: start: 20140717, end: 20140721
  52. BENDAMUSTINE [Suspect]
     Active Substance: BENDAMUSTINE
     Indication: CHRONIC LYMPHOCYTIC LEUKAEMIA
     Dosage: C1D1
     Route: 042
     Dates: start: 20140704, end: 20140704
  53. BENDAMUSTINE [Suspect]
     Active Substance: BENDAMUSTINE
     Dosage: C2D2
     Route: 042
     Dates: start: 20140808, end: 20140808
  54. DEXAMETHASONE. [Concomitant]
     Active Substance: DEXAMETHASONE
     Route: 042
     Dates: start: 20140703, end: 20140703
  55. PARACETAMOL [Concomitant]
     Active Substance: ACETAMINOPHEN
     Indication: PROPHYLAXIS
     Route: 048
     Dates: start: 20140703, end: 20140703
  56. ALLOPURINOL. [Concomitant]
     Active Substance: ALLOPURINOL
     Indication: PROPHYLAXIS
     Route: 048
     Dates: start: 20140703, end: 20140708
  57. FILGRASTIM [Concomitant]
     Active Substance: FILGRASTIM
     Dosage: 48 MU
     Route: 058
     Dates: start: 20141001, end: 20141014
  58. BENDAMUSTINE [Suspect]
     Active Substance: BENDAMUSTINE
     Route: 042
     Dates: start: 20141006
  59. AVIL [Concomitant]
     Active Substance: PHENIRAMINE
     Route: 042
     Dates: start: 20140716, end: 20140716
  60. AVIL [Concomitant]
     Active Substance: PHENIRAMINE
     Route: 042
     Dates: start: 20140808, end: 20140808
  61. RANITIDINE [Concomitant]
     Active Substance: RANITIDINE\RANITIDINE HYDROCHLORIDE
     Route: 042
     Dates: start: 20140808, end: 20140808
  62. DEKORT [Concomitant]
     Active Substance: DEXAMETHASONE
     Route: 042
     Dates: start: 20140716, end: 20140716
  63. DEKORT [Concomitant]
     Active Substance: DEXAMETHASONE
     Route: 042
     Dates: start: 20140807, end: 20140807
  64. DEKORT [Concomitant]
     Active Substance: DEXAMETHASONE
     Route: 042
     Dates: start: 20140808, end: 20140808
  65. DEKORT [Concomitant]
     Active Substance: DEXAMETHASONE
     Route: 042
     Dates: start: 20140908, end: 20140908
  66. DEKORT [Concomitant]
     Active Substance: DEXAMETHASONE
     Route: 042
     Dates: start: 20141013, end: 20141013

REACTIONS (1)
  - Febrile neutropenia [Recovered/Resolved]

NARRATIVE: CASE EVENT DATE: 20141003
